FAERS Safety Report 9403740 (Version 2)
Quarter: 2013Q3

REPORT INFORMATION
  Report Type: Spontaneous
  Country: US (occurrence: US)
  Receive Date: 20130717
  Receipt Date: 20130828
  Transmission Date: 20140515
  Serious: Yes (Other)
  Sender: FDA-Public Use
  Company Number: US-ASTRAZENECA-2013SE52171

PATIENT
  Age: 68 Year
  Sex: Female
  Weight: 84.8 kg

DRUGS (10)
  1. TOPROL XL [Suspect]
     Indication: HYPERTENSION
     Route: 048
     Dates: start: 2003
  2. SYMBICORT PMDI [Suspect]
     Indication: CHRONIC OBSTRUCTIVE PULMONARY DISEASE
     Dosage: 160/4.5 MCG, 2 PUFFS BID
     Route: 055
     Dates: start: 201202, end: 201301
  3. SYMBICORT PMDI [Suspect]
     Indication: CHRONIC OBSTRUCTIVE PULMONARY DISEASE
     Dosage: 160/4.5 MCG, 2 PUFFS BID
     Route: 055
     Dates: start: 201302
  4. SPIRIVA [Concomitant]
     Dates: start: 201301, end: 201302
  5. PLAVIX [Concomitant]
     Dates: start: 2012
  6. LIPITOR [Concomitant]
     Dates: start: 201203
  7. EXFORGE [Concomitant]
     Indication: HYPERTENSION
     Dates: start: 2012
  8. AMLODIPINE [Concomitant]
     Indication: HYPERTENSION
     Dates: start: 201301
  9. TERAZOSIN [Concomitant]
     Indication: HYPERTENSION
     Dates: start: 201306
  10. NEURONTIN [Concomitant]
     Indication: NEURALGIA
     Dates: start: 2009

REACTIONS (16)
  - Prerenal failure [Not Recovered/Not Resolved]
  - Renal atrophy [Unknown]
  - Cerebrovascular accident [Unknown]
  - Vascular graft occlusion [Recovered/Resolved with Sequelae]
  - Respiratory tract congestion [Unknown]
  - Oropharyngeal pain [Unknown]
  - Post procedural constipation [Recovered/Resolved]
  - Sleep disorder due to general medical condition, insomnia type [Recovered/Resolved]
  - Impaired healing [Recovered/Resolved]
  - Limb injury [Recovered/Resolved]
  - Neuralgia [Not Recovered/Not Resolved]
  - Hypertension [Unknown]
  - Drug dependence [Unknown]
  - Drug dose omission [Unknown]
  - Intentional drug misuse [Unknown]
  - Drug ineffective [Unknown]
